FAERS Safety Report 7762617-6 (Version None)
Quarter: 2011Q3

REPORT INFORMATION
  Report Type: 
  Country: None (occurrence: None)
  Receive Date: 20110920
  Receipt Date: 20110914
  Transmission Date: 20111222
  Serious: Yes (Hospitalization)
  Sender: FDA-Public Use
  Company Number: FR-GLAXOSMITHKLINE-B0723322A

PATIENT
  Sex: Female

DRUGS (5)
  1. ZANTAC [Suspect]
     Indication: PREMEDICATION
     Route: 048
     Dates: start: 20110304, end: 20110304
  2. BETADINE [Concomitant]
     Indication: PREMEDICATION
     Route: 061
     Dates: start: 20110304, end: 20110304
  3. ACETAMINOPHEN [Concomitant]
     Indication: PREMEDICATION
     Route: 048
     Dates: start: 20110304, end: 20110304
  4. ATARAX [Concomitant]
     Indication: PREMEDICATION
     Route: 048
     Dates: start: 20110304, end: 20110304
  5. KETOPROFEN [Concomitant]
     Indication: PREMEDICATION
     Route: 048
     Dates: start: 20110304, end: 20110304

REACTIONS (9)
  - DRUG HYPERSENSITIVITY [None]
  - LOSS OF CONSCIOUSNESS [None]
  - ABDOMINAL PAIN [None]
  - ANAPHYLACTOID REACTION [None]
  - NAUSEA [None]
  - HYPOTENSION [None]
  - VOMITING [None]
  - GENERALISED ERYTHEMA [None]
  - DIARRHOEA [None]
